FAERS Safety Report 23452929 (Version 2)
Quarter: 2024Q2

REPORT INFORMATION
  Report Type: Report from Study
  Country: US (occurrence: US)
  Receive Date: 20240129
  Receipt Date: 20240404
  Transmission Date: 20240716
  Serious: Yes (Hospitalization)
  Sender: FDA-Public Use
  Company Number: US-002147023-NVSC2024US014847

PATIENT
  Age: 64 Year
  Sex: Female

DRUGS (1)
  1. KESIMPTA [Suspect]
     Active Substance: OFATUMUMAB
     Indication: Relapsing multiple sclerosis
     Dosage: 20 MG, QW
     Route: 058
     Dates: start: 20240119

REACTIONS (7)
  - Injection related reaction [Unknown]
  - Somnolence [Unknown]
  - Chills [Unknown]
  - Hypertension [Unknown]
  - Pyrexia [Unknown]
  - Gait inability [Unknown]
  - Speech disorder [Unknown]

NARRATIVE: CASE EVENT DATE: 20240119
